FAERS Safety Report 21509577 (Version 10)
Quarter: 2023Q2

REPORT INFORMATION
  Report Type: Spontaneous
  Country: US (occurrence: US)
  Receive Date: 20221026
  Receipt Date: 20230526
  Transmission Date: 20230721
  Serious: Yes (Life-Threatening, Hospitalization, Other)
  Sender: FDA-Public Use
  Company Number: US-EXELIXIS-CABO-22056593

PATIENT
  Age: 76 Year
  Sex: Male
  Weight: 88.209 kg

DRUGS (40)
  1. OPDIVO [Suspect]
     Active Substance: NIVOLUMAB
     Indication: Renal cancer
     Dosage: UNK
  2. ELIQUIS [Suspect]
     Active Substance: APIXABAN
     Indication: Deep vein thrombosis
     Dosage: 5 MG, BID
     Route: 048
  3. CABOMETYX [Suspect]
     Active Substance: CABOZANTINIB S-MALATE
     Indication: Papillary renal cell carcinoma
     Dosage: 40 MG, QD
     Route: 048
     Dates: start: 20210903, end: 20211027
  4. CABOMETYX [Suspect]
     Active Substance: CABOZANTINIB S-MALATE
     Indication: Renal cancer
     Dosage: 40 MG, QD
     Route: 048
     Dates: start: 20220323, end: 20220606
  5. CABOMETYX [Suspect]
     Active Substance: CABOZANTINIB S-MALATE
     Dosage: 40 MG DAILY (1 WEEK ON, 1 WEEK OFF)
     Route: 048
     Dates: start: 20220622
  6. CABOMETYX [Suspect]
     Active Substance: CABOZANTINIB S-MALATE
     Dosage: 40 MG (TAKE 1 TABLET BY MOUTH ONCE DAILY FOR 3 WEEKS ON, 1 WEEK OFF)
     Route: 048
     Dates: start: 20220720, end: 20220918
  7. CABOMETYX [Suspect]
     Active Substance: CABOZANTINIB S-MALATE
     Dosage: 40 MG (TAKE 1 TABLET BY MOUTH ONCE DAILY FOR 3 WEEKS ON, 1 WEEK OFF)
     Route: 048
     Dates: end: 20221002
  8. CABOMETYX [Suspect]
     Active Substance: CABOZANTINIB S-MALATE
     Dosage: 40 MG (TAKE 1 TABLET BY MOUTH ONCE DAILY FOR 3 WEEKS ON, 1 WEEK OFF)
     Route: 048
     Dates: start: 20221016
  9. CABOMETYX [Suspect]
     Active Substance: CABOZANTINIB S-MALATE
     Dosage: 40 MG (1 WEEK ON, 1 WEEK OFF)
     Route: 048
     Dates: start: 20230105, end: 20230413
  10. CABOMETYX [Suspect]
     Active Substance: CABOZANTINIB S-MALATE
     Dosage: 40 MG (TAKE 1 TABLET BY MOUTH ONCE DAILY FOR 3 WEEKS ON, 1 WEEK OFF)
     Route: 048
     Dates: start: 20210902, end: 20221002
  11. CABOMETYX [Suspect]
     Active Substance: CABOZANTINIB S-MALATE
     Dosage: 1 WEEK ON, 1 WEEK OFF
     Route: 048
     Dates: end: 20230413
  12. CORTEF [Suspect]
     Active Substance: HYDROCORTISONE
     Indication: Adrenal insufficiency
     Route: 048
  13. ASPIRIN [Concomitant]
     Active Substance: ASPIRIN
  14. VITAMINS [Concomitant]
     Active Substance: VITAMINS
  15. FERROUS SULFATE [Concomitant]
     Active Substance: FERROUS SULFATE
  16. DOXAZOSIN [Concomitant]
     Active Substance: DOXAZOSIN MESYLATE
     Indication: Product used for unknown indication
  17. DOXAZOSIN [Concomitant]
     Active Substance: DOXAZOSIN MESYLATE
  18. HYDROCORTISONE [Concomitant]
     Active Substance: HYDROCORTISONE
     Indication: Hypothyroidism
  19. IRON [Concomitant]
     Active Substance: IRON
     Indication: Product used for unknown indication
  20. TRAMADOL [Concomitant]
     Active Substance: TRAMADOL
     Indication: Pain
  21. TRAMADOL [Concomitant]
     Active Substance: TRAMADOL
     Indication: Product used for unknown indication
  22. FINASTERIDE [Concomitant]
     Active Substance: FINASTERIDE
     Indication: Product used for unknown indication
  23. FOLIC ACID [Concomitant]
     Active Substance: FOLIC ACID
     Indication: Product used for unknown indication
  24. SOLU-CORTEF [Concomitant]
     Active Substance: HYDROCORTISONE SODIUM SUCCINATE
     Indication: Product used for unknown indication
  25. LEVOTHYROXINE [Concomitant]
     Active Substance: LEVOTHYROXINE
     Indication: Product used for unknown indication
  26. MAGNESIUM OXIDE [Concomitant]
     Active Substance: MAGNESIUM OXIDE
     Indication: Product used for unknown indication
  27. BUMETANIDE [Concomitant]
     Active Substance: BUMETANIDE
     Indication: Product used for unknown indication
  28. Hydrocodone/acetHYDROCODONE/ACETAMINOPHENaminophen [Concomitant]
     Indication: Product used for unknown indication
  29. ALLOPURINOL [Concomitant]
     Active Substance: ALLOPURINOL
     Indication: Product used for unknown indication
  30. VITAMIN D3 [Concomitant]
     Active Substance: CHOLECALCIFEROL
     Indication: Product used for unknown indication
  31. VITAMIN B12 [Concomitant]
     Active Substance: CYANOCOBALAMIN
     Indication: Product used for unknown indication
  32. POTASSIUM CHLORIDE [Concomitant]
     Active Substance: POTASSIUM CHLORIDE
     Indication: Product used for unknown indication
  33. CALMOSEPTINE [ZINC OXIDE] [Concomitant]
     Indication: Product used for unknown indication
  34. CLOBETASOL [Concomitant]
     Active Substance: CLOBETASOL
     Indication: Product used for unknown indication
  35. ATROPINE\DIPHENOXYLATE [Concomitant]
     Active Substance: ATROPINE\DIPHENOXYLATE
     Indication: Product used for unknown indication
  36. LOPERAMIDE HYDROCHLORIDE [Concomitant]
     Active Substance: LOPERAMIDE HYDROCHLORIDE
     Indication: Product used for unknown indication
  37. MAGNESIUM [Concomitant]
     Active Substance: MAGNESIUM
     Indication: Product used for unknown indication
  38. METOLAZONE [Concomitant]
     Active Substance: METOLAZONE
     Indication: Product used for unknown indication
  39. ONDANSETRON [Concomitant]
     Active Substance: ONDANSETRON
     Indication: Product used for unknown indication
  40. TYLENOL [Concomitant]
     Active Substance: ACETAMINOPHEN
     Indication: Product used for unknown indication

REACTIONS (30)
  - Deep vein thrombosis [Recovering/Resolving]
  - Renal cyst ruptured [Unknown]
  - Renal failure [Unknown]
  - Large intestine perforation [Unknown]
  - Septic shock [Unknown]
  - Cardiac failure acute [Unknown]
  - Postoperative abscess [Unknown]
  - Rectal haemorrhage [Recovering/Resolving]
  - Haematuria [Recovering/Resolving]
  - Epistaxis [Recovering/Resolving]
  - Metastases to lymph nodes [Unknown]
  - Metastases to abdominal cavity [Unknown]
  - Metastases to soft tissue [Unknown]
  - Night sweats [Recovered/Resolved]
  - White blood cell count decreased [Unknown]
  - Blood pressure systolic increased [Recovered/Resolved]
  - Dehydration [Unknown]
  - Generalised oedema [Recovering/Resolving]
  - Gastric dilatation [Unknown]
  - Post procedural complication [Unknown]
  - Adrenal insufficiency [Unknown]
  - Hypothyroidism [Unknown]
  - Weight decreased [Unknown]
  - Adrenal mass [Unknown]
  - Monoclonal gammopathy [Unknown]
  - Insomnia [Unknown]
  - Gastrooesophageal reflux disease [Unknown]
  - Anaemia [Unknown]
  - Intestinal obstruction [Unknown]
  - Hernia [Unknown]

NARRATIVE: CASE EVENT DATE: 20220404
